FAERS Safety Report 15531423 (Version 3)
Quarter: 2018Q4

REPORT INFORMATION
  Report Type: Report from Study
  Country: FR (occurrence: FR)
  Receive Date: 20181019
  Receipt Date: 20181113
  Transmission Date: 20190205
  Serious: Yes (Hospitalization)
  Sender: FDA-Public Use
  Company Number: FR-ROCHE-2188483

PATIENT
  Age: 73 Year
  Sex: Male
  Weight: 50 kg

DRUGS (7)
  1. RITUXIMAB. [Suspect]
     Active Substance: RITUXIMAB
     Indication: MANTLE CELL LYMPHOMA
     Dosage: EVERY 8 WEEKS FOR 24 MONTHS?LAST DOSE PRIOR TO SAE ON 23/AUG/2018 1400 MG
     Route: 058
     Dates: start: 20180622
  2. VINCRISTINE [Concomitant]
     Active Substance: VINCRISTINE
     Dosage: ADMINISTERED IN 3 WEEK CYCLES FOR 8 CYCLES
     Route: 065
     Dates: start: 20171025, end: 20180425
  3. DOXORUBICIN [Concomitant]
     Active Substance: DOXORUBICIN
     Indication: MANTLE CELL LYMPHOMA
     Dosage: ADMINISTERED IN 3 WEEK CYCLES FOR 8 CYCLES
     Route: 065
     Dates: start: 20171025, end: 20180425
  4. LENALIDOMIDE [Suspect]
     Active Substance: LENALIDOMIDE
     Indication: MANTLE CELL LYMPHOMA
     Dosage: 3 WEEKS EVERY 4 WEEKS FOR 24 MONTHS?LAST DOSE PRIOR TO SAE ON 11/SEP/2018
     Route: 065
     Dates: start: 20180623
  5. PREDNISONE. [Concomitant]
     Active Substance: PREDNISONE
     Indication: MANTLE CELL LYMPHOMA
     Dosage: ADMINISTERED IN 3 WEEK CYCLES FOR 8 CYCLES
     Route: 065
     Dates: start: 20171025, end: 20180425
  6. RITUXIMAB. [Concomitant]
     Active Substance: RITUXIMAB
     Indication: MANTLE CELL LYMPHOMA
     Dosage: ADMINISTERED IN 3 WEEK CYCLES FOR 8 CYCLES
     Route: 042
     Dates: start: 20171025, end: 20180425
  7. CYCLOPHOSPHAMIDE. [Concomitant]
     Active Substance: CYCLOPHOSPHAMIDE
     Dosage: ADMINISTERED IN 3 WEEK CYCLES FOR 8 CYCLES
     Route: 065
     Dates: start: 20171025, end: 20180425

REACTIONS (1)
  - Acute respiratory failure [Recovered/Resolved]

NARRATIVE: CASE EVENT DATE: 20180912
